FAERS Safety Report 20060943 (Version 1)
Quarter: 2021Q4

REPORT INFORMATION
  Report Type: Other
  Country: JP (occurrence: None)
  Receive Date: 20211112
  Receipt Date: 20211112
  Transmission Date: 20220303
  Serious: Yes (Other)
  Sender: FDA-Public Use
  Company Number: JP-ROCHE-2953864

PATIENT

DRUGS (3)
  1. ATEZOLIZUMAB [Suspect]
     Active Substance: ATEZOLIZUMAB
     Indication: Non-small cell lung cancer
     Route: 065
  2. PEMBROLIZUMAB [Suspect]
     Active Substance: PEMBROLIZUMAB
     Indication: Non-small cell lung cancer
     Route: 065
  3. NIVOLUMAB [Suspect]
     Active Substance: NIVOLUMAB
     Indication: Non-small cell lung cancer
     Route: 065

REACTIONS (8)
  - Cholangitis sclerosing [Unknown]
  - Hepatitis [Unknown]
  - Pancreatitis [Unknown]
  - Retroperitoneal fibrosis [Unknown]
  - Renal disorder [Unknown]
  - Rash [Unknown]
  - Neuropathy peripheral [Unknown]
  - Anaemia [Unknown]
